FAERS Safety Report 17222956 (Version 1)
Quarter: 2020Q1

REPORT INFORMATION
  Report Type: Spontaneous
  Country: DE (occurrence: DE)
  Receive Date: 20200102
  Receipt Date: 20200102
  Transmission Date: 20200409
  Serious: Yes (Other)
  Sender: FDA-Public Use
  Company Number: DE-DEXPHARM-20191218

PATIENT
  Age: 60 Year
  Sex: Female

DRUGS (11)
  1. REAGILA CARIPRAZIN [Suspect]
     Active Substance: CARIPRAZINE
     Dates: start: 20181115, end: 20181120
  2. LAMOTRIGINE. [Suspect]
     Active Substance: LAMOTRIGINE
     Dosage: FOR MONTHS
  3. L-THYROXIN [Concomitant]
     Active Substance: LEVOTHYROXINE SODIUM
     Dosage: FOR MONTHS
  4. ASS 100 [Concomitant]
     Active Substance: ASPIRIN
     Dates: start: 20181108
  5. REAGILA CARIPRAZIN [Suspect]
     Active Substance: CARIPRAZINE
     Dates: start: 20181121
  6. PIPAMPERON [Suspect]
     Active Substance: PIPAMPERONE HYDROCHLORIDE
     Dates: start: 20181104
  7. VENLAFAXINE [Suspect]
     Active Substance: VENLAFAXINE HYDROCHLORIDE
     Dates: start: 20181121, end: 20181121
  8. VENLAFAXINE [Suspect]
     Active Substance: VENLAFAXINE HYDROCHLORIDE
     Dates: start: 20181122, end: 20181128
  9. MIRTAZAPIN [Suspect]
     Active Substance: MIRTAZAPINE
     Dates: start: 20181120, end: 20181120
  10. MIRTAZAPIN [Suspect]
     Active Substance: MIRTAZAPINE
     Dates: start: 20181121
  11. MIRTAZAPIN [Suspect]
     Active Substance: MIRTAZAPINE
     Dosage: INTAKE FOT MONTHS
     Dates: end: 20181119

REACTIONS (1)
  - Tongue discomfort [Recovered/Resolved]

NARRATIVE: CASE EVENT DATE: 20181124
